FAERS Safety Report 7991327-5 (Version None)
Quarter: 2011Q4

REPORT INFORMATION
  Report Type: 
  Country: None (occurrence: None)
  Receive Date: 20111219
  Receipt Date: 20111214
  Transmission Date: 20120403
  Serious: Yes (Other)
  Sender: FDA-Public Use
  Company Number: DE-PFIZER INC-2011271354

PATIENT
  Age: 57 Year
  Sex: Female
  Weight: 62 kg

DRUGS (2)
  1. GINGER [Interacting]
     Dosage: UNK
     Dates: start: 20110101
  2. CELEBREX [Suspect]
     Indication: ARTHRITIS
     Dosage: 200 MG/DAY
     Dates: start: 20110101

REACTIONS (4)
  - DRUG INTERACTION [None]
  - URTICARIA [None]
  - HEADACHE [None]
  - ANAPHYLACTIC SHOCK [None]
